FAERS Safety Report 17659964 (Version 1)
Quarter: 2020Q2

REPORT INFORMATION
  Report Type: Report from Study
  Country: US (occurrence: US)
  Receive Date: 20200413
  Receipt Date: 20200413
  Transmission Date: 20200713
  Serious: Yes (Death)
  Sender: FDA-Public Use
  Company Number: NVSC2020US096678

PATIENT
  Sex: Male

DRUGS (1)
  1. AFINITOR DISPERZ [Suspect]
     Active Substance: EVEROLIMUS
     Indication: CARCINOID TUMOUR
     Dosage: 5 MG, QD
     Route: 048
     Dates: start: 20191004

REACTIONS (5)
  - Malaise [Unknown]
  - Hepatic lesion [Unknown]
  - Carcinoid tumour [Fatal]
  - Malignant neoplasm progression [Fatal]
  - Vomiting [Unknown]
